FAERS Safety Report 8622392-X (Version None)
Quarter: 2012Q3

REPORT INFORMATION
  Report Type: 
  Country: None (occurrence: None)
  Receive Date: 20120827
  Receipt Date: 20120820
  Transmission Date: 20120928
  Serious: No
  Sender: FDA-Public Use
  Company Number: US-BIOGENIDEC-2012BI032553

PATIENT
  Sex: Female

DRUGS (1)
  1. TYSABRI [Suspect]
     Indication: MULTIPLE SCLEROSIS
     Route: 042
     Dates: start: 20100707, end: 20110513

REACTIONS (4)
  - MULTIPLE SCLEROSIS RELAPSE [None]
  - GENERAL PHYSICAL CONDITION ABNORMAL [None]
  - MALAISE [None]
  - ASTHENIA [None]
